FAERS Safety Report 8923367 (Version 2)
Quarter: 2013Q2

REPORT INFORMATION
  Report Type: Report from Study
  Country: US (occurrence: US)
  Receive Date: 20121123
  Receipt Date: 20130506
  Transmission Date: 20140414
  Serious: Yes (Hospitalization)
  Sender: FDA-Public Use
  Company Number: PHEH2012US022453

PATIENT
  Age: 40 Year
  Sex: Male
  Weight: 96.6 kg

DRUGS (1)
  1. GILENYA [Suspect]
     Indication: MULTIPLE SCLEROSIS
     Dosage: 0.5 MG, QD
     Route: 048
     Dates: start: 20121112, end: 20121112

REACTIONS (2)
  - Heart rate decreased [Recovered/Resolved]
  - Fatigue [Recovering/Resolving]
